FAERS Safety Report 7735665-X (Version None)
Quarter: 2011Q3

REPORT INFORMATION
  Report Type: 
  Country: None (occurrence: None)
  Receive Date: 20110907
  Receipt Date: 20110829
  Transmission Date: 20111222
  Serious: Yes (Hospitalization)
  Sender: FDA-Public Use
  Company Number: JP-AMGEN-JPNCT2011045592

PATIENT
  Age: 78 Year
  Sex: Male
  Weight: 58 kg

DRUGS (15)
  1. WARFARIN [Concomitant]
     Dosage: UNK
     Route: 048
  2. IRINOTECAN HCL [Suspect]
     Route: 041
     Dates: start: 20110215, end: 20110215
  3. NEWTOLIDE [Concomitant]
     Dosage: UNK
     Route: 048
  4. RHYTHMY [Concomitant]
     Dosage: UNK
     Route: 048
  5. LASIX [Concomitant]
     Dosage: UNK
     Route: 048
  6. DECADRON [Concomitant]
     Route: 042
  7. PANITUMUMAB [Suspect]
     Indication: COLORECTAL CANCER METASTATIC
     Dosage: 6 MG/KG, Q2WK
     Route: 041
     Dates: start: 20110105
  8. ADALAT [Concomitant]
     Dosage: UNK
     Route: 048
  9. ALLORIN [Concomitant]
     Dosage: UNK
     Route: 048
  10. IRINOTECAN HCL [Suspect]
     Indication: COLORECTAL CANCER
     Route: 041
     Dates: start: 20101004, end: 20101004
  11. GRANISETRON [Concomitant]
     Dosage: UNK
     Route: 042
  12. TICLOPIDINE HCL [Concomitant]
     Dosage: UNK
     Route: 048
  13. BUFFERIN [Concomitant]
     Dosage: UNK
     Route: 048
  14. CORTICOSTEROIDS [Concomitant]
     Indication: PROPHYLAXIS
     Dosage: UNK
  15. BUSPON [Concomitant]
     Dosage: UNK
     Route: 042

REACTIONS (4)
  - DECREASED APPETITE [None]
  - DERMATITIS ACNEIFORM [None]
  - NAUSEA [None]
  - DIARRHOEA [None]
